FAERS Safety Report 6357821-8 (Version None)
Quarter: 2009Q3

REPORT INFORMATION
  Report Type: 
  Country: None (occurrence: None)
  Receive Date: 20090911
  Receipt Date: 20090901
  Transmission Date: 20100115
  Serious: Yes (Other)
  Sender: FDA-Public Use
  Company Number: 2009SP023108

PATIENT
  Age: 84 Year
  Sex: 0

DRUGS (2)
  1. TEMODAL [Suspect]
     Indication: ANAPLASTIC ASTROCYTOMA
  2. TEMODAL [Suspect]
     Indication: GLIOBLASTOMA

REACTIONS (2)
  - CONVULSION [None]
  - PNEUMONIA [None]
